FAERS Safety Report 9275563 (Version 2)
Quarter: 2013Q2

REPORT INFORMATION
  Report Type: Spontaneous
  Country: US (occurrence: US)
  Receive Date: 20130507
  Receipt Date: 20130527
  Transmission Date: 20140414
  Serious: No
  Sender: FDA-Public Use
  Company Number: US-PFIZER INC-2013141055

PATIENT
  Age: 56 Year
  Sex: Male
  Weight: 129 kg

DRUGS (6)
  1. CHANTIX [Suspect]
     Indication: SMOKING CESSATION THERAPY
     Dosage: 0.5 MG, DAILY
     Route: 048
     Dates: start: 201304, end: 201304
  2. CHANTIX [Suspect]
     Dosage: 0.5 MG, UNK
     Route: 048
     Dates: start: 201304, end: 201304
  3. CHANTIX [Suspect]
     Dosage: 1 MG, 2X/DAY
     Dates: start: 20130503
  4. AMLODIPINE/BENAZEPRIL [Concomitant]
     Indication: BLOOD PRESSURE ABNORMAL
     Dosage: 5/20MG, 2X/DAY
  5. AMLODIPINE/BENAZEPRIL [Concomitant]
     Dosage: 5/20MG, DAILY
  6. NEURONTIN [Concomitant]
     Indication: NERVE INJURY
     Dosage: UNK

REACTIONS (3)
  - Dysgeusia [Unknown]
  - Boredom [Unknown]
  - Back pain [Unknown]
